FAERS Safety Report 25967300 (Version 2)
Quarter: 2025Q4

REPORT INFORMATION
  Report Type: Spontaneous
  Country: JP (occurrence: JP)
  Receive Date: 20251028
  Receipt Date: 20251216
  Transmission Date: 20260117
  Serious: Yes (Other)
  Sender: ASTELLAS
  Company Number: JP-ASTELLAS-2025-AER-045880

PATIENT
  Age: 68 Year
  Sex: Male

DRUGS (5)
  1. PADCEV [Suspect]
     Active Substance: ENFORTUMAB VEDOTIN-EJFV
     Indication: Bladder cancer
     Dosage: ONCE WEEKLY FOR 2 WEEKS, FOLLOWED BY A 1-WEEK BREAK FOR 1 CYCLE
     Route: 042
     Dates: start: 20241106
  2. PADCEV [Suspect]
     Active Substance: ENFORTUMAB VEDOTIN-EJFV
     Dosage: ONCE WEEKLY FOR 2 WEEKS, FOLLOWED BY A 1-WEEK BREAK FOR 1 CYCLE
     Route: 042
     Dates: end: 202501
  3. PADCEV [Suspect]
     Active Substance: ENFORTUMAB VEDOTIN-EJFV
     Dosage: ONCE WEEKLY FOR 2 WEEKS, FOLLOWED BY A 1-WEEK BREAK FOR 1 CYCLE
     Route: 042
     Dates: start: 202503
  4. PADCEV [Suspect]
     Active Substance: ENFORTUMAB VEDOTIN-EJFV
     Dosage: ONCE WEEKLY FOR 2 WEEKS, FOLLOWED BY A 1-WEEK BREAK FOR 1 CYCLE
     Route: 042
  5. PEMBROLIZUMAB [Concomitant]
     Active Substance: PEMBROLIZUMAB
     Indication: Product used for unknown indication
     Route: 065

REACTIONS (4)
  - Malignant neoplasm progression [Not Recovered/Not Resolved]
  - Pneumonia [Not Recovered/Not Resolved]
  - Hypoaesthesia [Recovering/Resolving]
  - Adrenal insufficiency [Recovered/Resolved]

NARRATIVE: CASE EVENT DATE: 20250801
